FAERS Safety Report 10548922 (Version 1)
Quarter: 2014Q4

REPORT INFORMATION
  Report Type: Spontaneous
  Country: US (occurrence: None)
  Receive Date: 20141027
  Receipt Date: 20141027
  Transmission Date: 20150529
  Serious: Yes (Hospitalization)
  Sender: FDA-Public Use
  Company Number: None

PATIENT
  Age: 51 Year
  Sex: Female
  Weight: 56.7 kg

DRUGS (2)
  1. ZYPREXA RELPREVV [Suspect]
     Active Substance: OLANZAPINE PAMOATE
     Indication: SCHIZOPHRENIA
     Dosage: 405 MG/1 INJECTION MONTHLY INTRAMUSCULAR
     Route: 030
     Dates: start: 20141021, end: 20141021
  2. ATIVAN [Concomitant]
     Active Substance: LORAZEPAM

REACTIONS (3)
  - Post-injection delirium sedation syndrome [None]
  - Agitation [None]
  - Hypotension [None]

NARRATIVE: CASE EVENT DATE: 20141021
